FAERS Safety Report 20913592 (Version 2)
Quarter: 2022Q2

REPORT INFORMATION
  Report Type: Spontaneous
  Country: US (occurrence: None)
  Receive Date: 20220604
  Receipt Date: 20220628
  Transmission Date: 20220720
  Serious: No
  Sender: FDA-Public Use
  Company Number: 2022A184884

PATIENT
  Age: 66 Year

DRUGS (2)
  1. BUDESONIDE\FORMOTEROL FUMARATE DIHYDRATE [Suspect]
     Active Substance: BUDESONIDE\FORMOTEROL FUMARATE DIHYDRATE
     Indication: Chronic obstructive pulmonary disease
     Dosage: 160MCG/4.5MCG VIA INHALATION, 2 PUFFS TWICE DAILY
     Route: 055
     Dates: start: 2022
  2. SYMBICORT [Suspect]
     Active Substance: BUDESONIDE\FORMOTEROL FUMARATE DIHYDRATE
     Route: 055
     Dates: end: 2022

REACTIONS (5)
  - Malaise [Unknown]
  - Fatigue [Unknown]
  - Device delivery system issue [Unknown]
  - Insurance issue [Unknown]
  - Device use issue [Unknown]

NARRATIVE: CASE EVENT DATE: 20220101
